FAERS Safety Report 6415713-X (Version None)
Quarter: 2009Q4

REPORT INFORMATION
  Report Type: 
  Country: None (occurrence: None)
  Receive Date: 20091027
  Receipt Date: 20090508
  Transmission Date: 20100525
  Serious: Yes (Death, Life-Threatening)
  Sender: FDA-Public Use
  Company Number: DE-PFIZER INC-2009193078

PATIENT
  Age: 36 Year

DRUGS (7)
  1. AMPICILLIN AND SULBACTAM [Suspect]
     Indication: ENDOCARDITIS PROPHYLAXIS
     Dosage: 3 G, 2X/DAY
     Route: 042
     Dates: start: 20090303, end: 20090303
  2. AMPICILLIN AND AMPICILLIN SODIUM AND AMPICILLIN TRIHYDRATE [Suspect]
     Indication: ENDOCARDITIS PROPHYLAXIS
     Dosage: 2 G, 2X/DAY
     Route: 042
     Dates: start: 20090226, end: 20090226
  3. CLEXANE [Concomitant]
     Route: 058
  4. PERENTEROL [Concomitant]
  5. LOPEDIUM [Concomitant]
  6. ASCORVIT [Concomitant]
  7. PLASTULEN [Concomitant]

REACTIONS (5)
  - MEGACOLON [None]
  - MULTI-ORGAN FAILURE [None]
  - PALPITATIONS [None]
  - PERITONITIS BACTERIAL [None]
  - PSEUDOMEMBRANOUS COLITIS [None]
